FAERS Safety Report 6168917-8 (Version None)
Quarter: 2009Q2

REPORT INFORMATION
  Report Type: 
  Country: None (occurrence: None)
  Receive Date: 20090427
  Receipt Date: 20090417
  Transmission Date: 20091009
  Serious: Yes (Hospitalization, Other)
  Sender: FDA-Public Use
  Company Number: PHHY2009JP07058

PATIENT
  Sex: Male

DRUGS (7)
  1. VOLTAREN [Suspect]
     Indication: BACK PAIN
     Dosage: 75 MG/DAY
     Route: 048
     Dates: start: 20090124, end: 20090130
  2. LOXONIN [Concomitant]
     Indication: BACK PAIN
     Dosage: 180 MG/DAY
     Route: 048
     Dates: start: 20081227, end: 20090123
  3. KETOPROFEN [Concomitant]
     Indication: BACK PAIN
     Dosage: UNK
     Route: 062
     Dates: start: 20081227, end: 20090130
  4. MUCOSTA [Concomitant]
     Indication: GASTRITIS
     Dosage: 300 MG
     Route: 048
     Dates: start: 20081227, end: 20090130
  5. ZYLORIC [Concomitant]
     Indication: HYPERURICAEMIA
     Dosage: 200 MG
     Route: 048
     Dates: start: 20080902
  6. ZYLORIC [Concomitant]
     Dosage: 200 MG
     Route: 048
     Dates: end: 20081001
  7. ZYLORIC [Concomitant]
     Dosage: 200 MG
     Route: 048
     Dates: start: 20090127

REACTIONS (6)
  - ABDOMINAL PAIN [None]
  - ACUTE ABDOMEN [None]
  - DUODENAL PERFORATION [None]
  - GASTRIC ULCER [None]
  - LAPAROTOMY [None]
  - PERITONITIS [None]
